FAERS Safety Report 9474833 (Version 1)
Quarter: 2013Q3

REPORT INFORMATION
  Report Type: Spontaneous
  Country: ES (occurrence: ES)
  Receive Date: 20130823
  Receipt Date: 20130823
  Transmission Date: 20140515
  Serious: Yes (Hospitalization)
  Sender: FDA-Public Use
  Company Number: PHHY2013ES089115

PATIENT
  Age: 68 Year
  Sex: Male

DRUGS (3)
  1. AMIODARONE [Suspect]
     Indication: ATRIAL FIBRILLATION
     Dosage: 200 MG/DAY
  2. THIAMAZOLE [Suspect]
     Indication: HYPERTHYROIDISM
     Dosage: 10 MG EVERY 8 HOURS
  3. PREDNISONE [Concomitant]

REACTIONS (4)
  - Atrial fibrillation [Unknown]
  - Hyperthyroidism [Recovered/Resolved]
  - Hepatitis cholestatic [Recovered/Resolved]
  - Drug ineffective [Unknown]
